FAERS Safety Report 8435744-8 (Version None)
Quarter: 2012Q2

REPORT INFORMATION
  Report Type: 
  Country: None (occurrence: None)
  Receive Date: 20120614
  Receipt Date: 20120606
  Transmission Date: 20120825
  Serious: Yes (Other)
  Sender: FDA-Public Use
  Company Number: US-JNJFOC-20120517276

PATIENT
  Sex: Female

DRUGS (2)
  1. AN UNKNOWN MEDICATION [Concomitant]
     Indication: MUSCLE DISORDER
     Route: 065
  2. NUCYNTA ER [Suspect]
     Indication: FIBROMYALGIA
     Dosage: 100 MG/ ONCE EVERY 12 HOURS
     Route: 048
     Dates: start: 20120101

REACTIONS (5)
  - HOMICIDAL IDEATION [None]
  - UNEVALUABLE EVENT [None]
  - MALAISE [None]
  - DEPRESSION [None]
  - HYPERHIDROSIS [None]
